FAERS Safety Report 8236294-4 (Version None)
Quarter: 2012Q1

REPORT INFORMATION
  Report Type: 
  Country: None (occurrence: None)
  Receive Date: 20120327
  Receipt Date: 20120316
  Transmission Date: 20120608
  Serious: No
  Sender: FDA-Public Use
  Company Number: JP-JNJFOC-20120309179

PATIENT

DRUGS (1)
  1. FENTANYL-100 [Suspect]
     Indication: PRODUCT USED FOR UNKNOWN INDICATION
     Dosage: 12.5 MCG/HR AT ONE AND A HALF PATCHES.
     Route: 062

REACTIONS (1)
  - DRUG PRESCRIBING ERROR [None]
